FAERS Safety Report 4779074-4 (Version None)
Quarter: 2005Q3

REPORT INFORMATION
  Report Type: 
  Country: None (occurrence: None)
  Receive Date: 20050923
  Receipt Date: 20050909
  Transmission Date: 20060218
  Serious: Yes (Other)
  Sender: FDA-Public Use
  Company Number: 8011707

PATIENT
  Age: 21 Year
  Sex: Female
  Weight: 70 kg

DRUGS (4)
  1. LEVETIRACETAM [Suspect]
     Indication: EPILEPSY
     Dosage: 3000 MG /D PO
     Route: 048
     Dates: start: 20050517
  2. PHENOBARBITAL TAB [Concomitant]
  3. VALPROIC ACID [Concomitant]
  4. FOLIC ACID [Concomitant]

REACTIONS (2)
  - AGGRESSION [None]
  - HALLUCINATION, AUDITORY [None]
